FAERS Safety Report 8777961 (Version 2)
Quarter: 2012Q4

REPORT INFORMATION
  Report Type: 
  Country: AR (occurrence: AR)
  Receive Date: 20120912
  Receipt Date: 20121108
  Transmission Date: 20130627
  Serious: Yes (Other)
  Sender: FDA-Public Use
  Company Number: PHHY2012AR077946

PATIENT
  Age: 10 Year
  Sex: Female

DRUGS (3)
  1. ISONIAZID [Suspect]
     Indication: TUBERCULOSIS
     Dosage: 5 mg/kg, UNK
  2. PYRAZINAMIDE [Suspect]
     Indication: TUBERCULOSIS
     Dosage: 30 mg/kg, UNK
  3. RIFAMPICIN [Suspect]
     Indication: TUBERCULOSIS
     Dosage: 10 mg/kg, UNK

REACTIONS (12)
  - Acute hepatic failure [Recovered/Resolved]
  - Renal cyst [Recovered/Resolved]
  - Vomiting [Recovered/Resolved]
  - Dysarthria [Recovered/Resolved]
  - Jaundice [Recovered/Resolved]
  - Decreased appetite [Recovered/Resolved]
  - Asthenia [Recovered/Resolved]
  - Grand mal convulsion [Recovered/Resolved]
  - Hepatic enzyme abnormal [Recovered/Resolved]
  - Coagulopathy [Recovered/Resolved]
  - Encephalopathy [Recovered/Resolved]
  - Pyrexia [Recovered/Resolved]
